FAERS Safety Report 9486891 (Version 1)
Quarter: 2013Q3

REPORT INFORMATION
  Report Type: Spontaneous
  Country: US (occurrence: None)
  Receive Date: 20130827
  Receipt Date: 20130827
  Transmission Date: 20140515
  Serious: Yes (Other)
  Sender: FDA-Public Use
  Company Number: ADR-2012-00209

PATIENT
  Sex: Female

DRUGS (2)
  1. BACLOFEN [Suspect]
     Indication: MUSCLE SPASTICITY
  2. BUPIVACAINE [Suspect]

REACTIONS (9)
  - Headache [None]
  - Hot flush [None]
  - Musculoskeletal stiffness [None]
  - Fall [None]
  - Pain in extremity [None]
  - Muscle spasticity [None]
  - Nausea [None]
  - Device malfunction [None]
  - Hyperhidrosis [None]
